FAERS Safety Report 5130420-1 (Version None)
Quarter: 2006Q4

REPORT INFORMATION
  Report Type: 
  Country: None (occurrence: None)
  Receive Date: 20061013
  Receipt Date: 20061009
  Transmission Date: 20070319
  Serious: Yes (Hospitalization, Other)
  Sender: FDA-Public Use
  Company Number: HQWYE338310AUG06

PATIENT
  Age: 23 Year
  Sex: Male
  Weight: 85.6 kg

DRUGS (5)
  1. TACROLIMUS, CONTOL FOR SIROLIMUS (TRACROLIMUS, CONTROL FOR SIROLIMUS, [Suspect]
     Indication: PROPHYLAXIS AGAINST TRANSPLANT REJECTION
     Dosage: SEE IMAGE
     Route: 048
     Dates: start: 20050216, end: 20060821
  2. TACROLIMUS, CONTOL FOR SIROLIMUS (TRACROLIMUS, CONTROL FOR SIROLIMUS, [Suspect]
     Indication: PROPHYLAXIS AGAINST TRANSPLANT REJECTION
     Dosage: SEE IMAGE
     Route: 048
     Dates: start: 20060822
  3. ZENAPAX [Concomitant]
  4. MYCOPHENOLATE MOFETIL [Concomitant]
  5. CORTICOSTEROID NOS (CORTICOSTEROID NOS) [Concomitant]

REACTIONS (4)
  - CHRONIC ALLOGRAFT NEPHROPATHY [None]
  - IMMUNOSUPPRESSANT DRUG LEVEL DECREASED [None]
  - KIDNEY TRANSPLANT REJECTION [None]
  - THERAPEUTIC RESPONSE DECREASED [None]
